FAERS Safety Report 4562952-9 (Version None)
Quarter: 2005Q1

REPORT INFORMATION
  Report Type: 
  Country: None (occurrence: None)
  Receive Date: 20050121
  Receipt Date: 20050104
  Transmission Date: 20050727
  Serious: Yes (Hospitalization)
  Sender: FDA-Public Use
  Company Number: EWC041241783

PATIENT
  Age: 58 Year
  Sex: Female
  Weight: 60.782 kg

DRUGS (3)
  1. GEMCITABINE HYDROCHLORIDE                     (GEMCITABINE) [Suspect]
     Indication: NON-SMALL CELL LUNG CANCER STAGE IV
     Dosage: 1000MG/M2
     Route: 042
     Dates: start: 20041130
  2. KETOPROFEN [Concomitant]
  3. LEDERSCON [Concomitant]

REACTIONS (6)
  - PLATELET COUNT INCREASED [None]
  - PLEURAL EFFUSION [None]
  - PNEUMONIA [None]
  - SWELLING [None]
  - TENDERNESS [None]
  - WHITE BLOOD CELL COUNT INCREASED [None]
